FAERS Safety Report 24438632 (Version 1)
Quarter: 2024Q4

REPORT INFORMATION
  Report Type: Spontaneous
  Country: US (occurrence: None)
  Receive Date: 20241013
  Receipt Date: 20241013
  Transmission Date: 20250114
  Serious: Yes (Other)
  Sender: Public
  Company Number: None

PATIENT
  Age: 34 Year
  Sex: Female
  Weight: 76.5 kg

DRUGS (9)
  1. SEMAGLUTIDE [Suspect]
     Active Substance: SEMAGLUTIDE
     Indication: Obesity
     Dosage: OTHER QUANTITY : 8 UNITS;?OTHER FREQUENCY : 1X/WEEK;?
     Route: 058
     Dates: start: 20240823, end: 20240913
  2. SEMAGLUTIDE [Suspect]
     Active Substance: SEMAGLUTIDE
     Indication: Weight decreased
  3. VYVANSE [Concomitant]
     Active Substance: LISDEXAMFETAMINE DIMESYLATE
  4. UBRELVY [Concomitant]
     Active Substance: UBROGEPANT
  5. ALBUTEROL [Concomitant]
     Active Substance: ALBUTEROL
  6. PEPCID AC [Concomitant]
     Active Substance: FAMOTIDINE
  7. EXCEDRIN [Concomitant]
     Active Substance: ACETAMINOPHEN\ASPIRIN\CAFFEINE
  8. Ritual Multivitamin [Concomitant]
  9. Ritual Probiotic [Concomitant]

REACTIONS (7)
  - Nausea [None]
  - Constipation [None]
  - Flatulence [None]
  - Diarrhoea [None]
  - Product compounding quality issue [None]
  - Drug intolerance [None]
  - Dyspepsia [None]

NARRATIVE: CASE EVENT DATE: 20240918
